FAERS Safety Report 4319079-0 (Version None)
Quarter: 2004Q1

REPORT INFORMATION
  Report Type: 
  Country: None (occurrence: None)
  Receive Date: 20040316
  Receipt Date: 20040303
  Transmission Date: 20041129
  Serious: Yes (Hospitalization)
  Sender: FDA-Public Use
  Company Number: 2004PK00443

PATIENT
  Age: 70 Year
  Sex: Female

DRUGS (4)
  1. NEXIUM [Suspect]
     Indication: PROPHYLAXIS AGAINST GASTROINTESTINAL ULCER
     Dosage: 40 MG DAILY PO
     Route: 048
     Dates: start: 20030301, end: 20030521
  2. AZATHIOPRINE SODIUM [Suspect]
     Indication: SYSTEMIC LUPUS ERYTHEMATOSUS
     Dosage: 50 MG DAILY PO
     Route: 048
     Dates: start: 20020101, end: 20030521
  3. CHLOROCHIN [Suspect]
     Indication: SYSTEMIC LUPUS ERYTHEMATOSUS
     Dosage: 250 MG DAILY PO
     Route: 048
     Dates: start: 20030601, end: 20030710
  4. PREDNISOLONE [Concomitant]

REACTIONS (9)
  - DRUG INTERACTION [None]
  - GASTRIC POLYPS [None]
  - GASTRITIS EROSIVE [None]
  - GASTROINTESTINAL HAEMORRHAGE [None]
  - HAEMORRHOIDS [None]
  - INTERNATIONAL NORMALISED RATIO DECREASED [None]
  - PANCYTOPENIA [None]
  - POST PROCEDURAL HAEMORRHAGE [None]
  - PROCTITIS [None]
